FAERS Safety Report 18592537 (Version 1)
Quarter: 2020Q4

REPORT INFORMATION
  Report Type: Spontaneous
  Country: US (occurrence: US)
  Receive Date: 20201209
  Receipt Date: 20201209
  Transmission Date: 20210114
  Serious: No
  Sender: FDA-Public Use
  Company Number: US-009507513-2012USA000456

PATIENT
  Age: 43 Year
  Sex: Female

DRUGS (18)
  1. FOLLISTIM [Suspect]
     Active Substance: FOLLITROPIN
     Indication: INFERTILITY FEMALE
     Dosage: STRENGTH: 300 IU/0.36 ML; DOSE: 150 UNITS; PRN
     Route: 058
     Dates: start: 20201008
  2. TRAMADOL HYDROCHLORIDE. [Concomitant]
     Active Substance: TRAMADOL HYDROCHLORIDE
  3. CLOMIPHENE CITRATE. [Concomitant]
     Active Substance: CLOMIPHENE CITRATE
  4. DOXYCYCLINE HYCLATE. [Concomitant]
     Active Substance: DOXYCYCLINE HYCLATE
  5. MENOPUR [Concomitant]
     Active Substance: FOLLITROPIN\LUTEINIZING HORMONE
  6. PANTOPRAZOLE [Concomitant]
     Active Substance: PANTOPRAZOLE
  7. FOLLISTIM [Suspect]
     Active Substance: FOLLITROPIN
     Dosage: STRENGTH: 900 IU/1.08 ML; DOSE: 150 UNITS; PRN
     Route: 058
  8. GANIRELIX ACETATE. [Concomitant]
     Active Substance: GANIRELIX ACETATE
  9. METFORMIN [Concomitant]
     Active Substance: METFORMIN HYDROCHLORIDE
  10. ACETAMINOPHEN AND CODEINE [Concomitant]
     Active Substance: ACETAMINOPHEN\CODEINE PHOSPHATE
  11. METRONIDAZOLE. [Concomitant]
     Active Substance: METRONIDAZOLE
  12. PROGESTERONE. [Concomitant]
     Active Substance: PROGESTERONE
  13. ESTRADIOL. [Concomitant]
     Active Substance: ESTRADIOL
  14. DIAZEPAM. [Concomitant]
     Active Substance: DIAZEPAM
  15. METHYLDOPA. [Concomitant]
     Active Substance: METHYLDOPA
  16. FOLLISTIM [Suspect]
     Active Substance: FOLLITROPIN
     Dosage: STRENGTH: 600 IU/0.72 ML; DOSE: 150 UNITS; PRN
     Route: 058
  17. DECADRON [Concomitant]
     Active Substance: DEXAMETHASONE
  18. NP THYROID [Concomitant]
     Active Substance: LEVOTHYROXINE\LIOTHYRONINE

REACTIONS (1)
  - COVID-19 [Unknown]

NARRATIVE: CASE EVENT DATE: 20201201
